FAERS Safety Report 10882481 (Version 4)
Quarter: 2015Q2

REPORT INFORMATION
  Report Type: Spontaneous
  Country: GB (occurrence: GB)
  Receive Date: 20150303
  Receipt Date: 20150417
  Transmission Date: 20150821
  Serious: Yes (Life-Threatening, Hospitalization, Disabling, Other)
  Sender: FDA-Public Use
  Company Number: PHFR2015GB000651

PATIENT
  Age: 31 Year
  Sex: Female

DRUGS (2)
  1. CLOZARIL [Suspect]
     Active Substance: CLOZAPINE
     Indication: SCHIZOPHRENIA
     Dosage: 350 MG, QD
     Route: 048
     Dates: start: 20080922, end: 20150101
  2. FLUOXETINE [Concomitant]
     Active Substance: FLUOXETINE\FLUOXETINE HYDROCHLORIDE
     Indication: PRODUCT USED FOR UNKNOWN INDICATION
     Dosage: 20 MG, QD
     Route: 048
     Dates: end: 20150101

REACTIONS (16)
  - Multi-organ failure [Recovering/Resolving]
  - Blood creatinine decreased [Not Recovered/Not Resolved]
  - Neutropenia [Recovering/Resolving]
  - Sepsis [Recovered/Resolved]
  - Pyrexia [Unknown]
  - Platelet count decreased [Recovering/Resolving]
  - Subarachnoid haemorrhage [Recovering/Resolving]
  - Respiratory depression [Recovering/Resolving]
  - Pneumonia viral [Recovered/Resolved]
  - Red blood cell count decreased [Recovering/Resolving]
  - Lymphocyte count decreased [Recovering/Resolving]
  - Haemoglobin decreased [Recovering/Resolving]
  - Influenza [Recovered/Resolved]
  - Hepatic function abnormal [Recovered/Resolved]
  - Blood electrolytes abnormal [Unknown]
  - Pancytopenia [Recovering/Resolving]

NARRATIVE: CASE EVENT DATE: 201401
